FAERS Safety Report 7234953-3 (Version None)
Quarter: 2011Q1

REPORT INFORMATION
  Report Type: 
  Country: None (occurrence: None)
  Receive Date: 20110120
  Receipt Date: 20110112
  Transmission Date: 20110831
  Serious: Yes (Hospitalization, Other)
  Sender: FDA-Public Use
  Company Number: US-ASTELLAS-2011US000143

PATIENT

DRUGS (10)
  1. PLAVIX [Concomitant]
     Indication: ANTICOAGULANT THERAPY
     Dosage: 75 MG, UID/QD
     Route: 048
  2. CARVEDILOL [Concomitant]
     Indication: HEART RATE
     Dosage: 12.5 MG, BID
     Route: 048
  3. CITRICAL [Concomitant]
     Indication: BLOOD CALCIUM
     Dosage: 2 DF, UID/QD
     Route: 048
     Dates: start: 20040220
  4. DEMADEX [Concomitant]
     Indication: DIURETIC THERAPY
     Dosage: 40 MG TWICE DAILY
     Route: 048
  5. LOVAZA [Concomitant]
     Indication: CARDIAC DISORDER
     Dosage: 2 DF, UID/QD
     Route: 048
  6. PREDNISONE [Concomitant]
     Indication: HEART TRANSPLANT
     Dosage: 5 MG, UID/QD
     Route: 048
     Dates: start: 20040220
  7. IMURAN [Concomitant]
     Indication: CARDIAC DISORDER
     Dosage: 50 MG, UID/QD
     Route: 048
     Dates: start: 20040220
  8. PRAVASTATIN [Concomitant]
     Indication: CARDIAC DISORDER
     Dosage: 80 MG, UID/QD
     Route: 048
     Dates: start: 20040220
  9. PROGRAF [Suspect]
     Indication: HEART TRANSPLANT
     Dosage: 1 MG, BID
     Route: 048
     Dates: start: 20040220
  10. ASERINE [Concomitant]
     Indication: ANTICOAGULANT THERAPY
     Dosage: 325 MG, UID/QD
     Route: 048
     Dates: start: 20040220

REACTIONS (3)
  - CARDIAC FAILURE CONGESTIVE [None]
  - RESUSCITATION [None]
  - RENAL FAILURE [None]
